FAERS Safety Report 9167705 (Version 1)
Quarter: 2013Q1

REPORT INFORMATION
  Report Type: Spontaneous
  Country: US (occurrence: US)
  Receive Date: 20130318
  Receipt Date: 20130318
  Transmission Date: 20140127
  Serious: No
  Sender: FDA-Public Use
  Company Number: US-PFIZER INC-2013085562

PATIENT
  Age: 42 Year
  Sex: Female
  Weight: 118 kg

DRUGS (4)
  1. CELEBREX [Suspect]
     Indication: PAIN
     Dosage: 200 MG, 2X/DAY
     Route: 048
  2. CYMBALTA [Suspect]
     Dosage: 60 MG, 1X/DAY
     Route: 048
  3. NUVIGIL [Concomitant]
     Indication: SLEEP DISORDER
     Dosage: 250 MG, 1X/DAY
  4. BACLOFEN [Concomitant]
     Dosage: UNK

REACTIONS (1)
  - Skin ulcer [Not Recovered/Not Resolved]
